FAERS Safety Report 4353004-1 (Version None)
Quarter: 2004Q2

REPORT INFORMATION
  Report Type: 
  Country: None (occurrence: None)
  Receive Date: 20040430
  Receipt Date: 20040330
  Transmission Date: 20050107
  Serious: No
  Sender: FDA-Public Use
  Company Number: 205605

PATIENT
  Age: 42 Year
  Sex: Female
  Weight: 96 kg

DRUGS (5)
  1. XOLAIR [Suspect]
     Indication: ASTHMA
     Dosage: 375 MG, Q2W, SUBCUTANEOUS
     Route: 058
     Dates: start: 20030922
  2. SKIN TEST PPD(TUBERCULIN) [Suspect]
     Dosage: SUBCUTANEOUS
     Route: 058
     Dates: start: 20040308
  3. ADVAIR (SALMETEROL XINAFOATE, FLUTICASONE PROPIONATE) [Concomitant]
  4. ALLEGRA [Concomitant]
  5. ZYRTEC [Concomitant]

REACTIONS (1)
  - HYPERSENSITIVITY [None]
